FAERS Safety Report 7096212-1 (Version None)
Quarter: 2010Q4

REPORT INFORMATION
  Report Type: 
  Country: None (occurrence: None)
  Receive Date: 20101111
  Receipt Date: 20101103
  Transmission Date: 20110411
  Serious: Yes (Other)
  Sender: FDA-Public Use
  Company Number: AU-GILEAD-2010-0032472

PATIENT
  Sex: Female

DRUGS (6)
  1. VIREAD [Suspect]
     Indication: HEPATITIS B
     Dates: start: 20090831
  2. FLUVOXAMINE [Suspect]
  3. KARVEZIDE [Concomitant]
     Indication: HYPERTENSION
  4. GLICLAZIDE [Concomitant]
     Indication: DIABETES MELLITUS
  5. NIFEDIPINE [Concomitant]
     Indication: HYPERTENSION
  6. OMEPRAZOLE [Concomitant]

REACTIONS (5)
  - ALANINE AMINOTRANSFERASE INCREASED [None]
  - DISEASE PROGRESSION [None]
  - DRUG TOXICITY [None]
  - HEPATIC FIBROSIS [None]
  - HEPATITIS [None]
